FAERS Safety Report 12599185 (Version 6)
Quarter: 2019Q3

REPORT INFORMATION
  Report Type: Report from Study
  Country: JP (occurrence: JP)
  Receive Date: 20160727
  Receipt Date: 20190828
  Transmission Date: 20191004
  Serious: Yes (Death, Life-Threatening, Other)
  Sender: FDA-Public Use
  Company Number: JP-ASTELLAS-2009JP007891

PATIENT
  Age: 58 Year
  Sex: Female
  Weight: 62 kg

DRUGS (50)
  1. TACROLIMUS. [Suspect]
     Active Substance: TACROLIMUS
     Route: 048
     Dates: start: 20160423, end: 20170111
  2. PREDNISOLONE. [Suspect]
     Active Substance: PREDNISOLONE
     Dosage: 15MG/10MG, EVERY OTHER DAY
     Route: 048
     Dates: start: 20120728, end: 20140206
  3. ISODINE [Concomitant]
     Active Substance: POVIDONE-IODINE
     Indication: UPPER RESPIRATORY TRACT INFLAMMATION
  4. RINDERON V [Concomitant]
     Active Substance: BETAMETHASONE VALERATE
     Indication: BOWEN^S DISEASE
     Dosage: UNK UNK, UNKNOWN FREQ.
     Route: 065
  5. MICARDIS [Concomitant]
     Active Substance: TELMISARTAN
     Route: 048
     Dates: start: 20120914, end: 20140212
  6. URINORM [Concomitant]
     Active Substance: BENZBROMARONE
     Indication: HYPERURICAEMIA
     Route: 048
     Dates: start: 20110910, end: 20120128
  7. LASIX [Concomitant]
     Active Substance: FUROSEMIDE
     Route: 048
     Dates: start: 20160806
  8. TACROLIMUS. [Suspect]
     Active Substance: TACROLIMUS
     Indication: LUPUS NEPHRITIS
     Route: 048
     Dates: start: 20070728, end: 20090911
  9. CALONAL [Concomitant]
     Active Substance: ACETAMINOPHEN
     Indication: PRODUCT USED FOR UNKNOWN INDICATION
     Route: 048
     Dates: start: 20070728, end: 20071214
  10. SHAKUYAKUKANZOTO [Concomitant]
     Active Substance: HERBALS
     Indication: GASTROENTERITIS
     Route: 048
     Dates: start: 20140605
  11. PREDNISOLONE. [Suspect]
     Active Substance: PREDNISOLONE
     Route: 048
     Dates: start: 20080323, end: 20120727
  12. JUVELA N [Concomitant]
     Active Substance: TOCOPHERYL NICOTINATE, D-.ALPHA.
     Indication: HYPERLIPIDAEMIA
     Route: 048
  13. BENET [Concomitant]
     Active Substance: RISEDRONATE SODIUM
     Indication: PROPHYLAXIS
     Route: 048
  14. ISODINE [Concomitant]
     Active Substance: POVIDONE-IODINE
     Indication: PHARYNGITIS
     Dosage: UNK UNK, UNKNOWN FREQ.
     Route: 065
  15. CALONAL [Concomitant]
     Active Substance: ACETAMINOPHEN
     Route: 048
     Dates: start: 20071215, end: 20091113
  16. CRESTOR [Concomitant]
     Active Substance: ROSUVASTATIN CALCIUM
     Indication: HYPERLIPIDAEMIA
     Route: 048
     Dates: start: 20080322
  17. MICARDIS [Concomitant]
     Active Substance: TELMISARTAN
     Route: 048
     Dates: start: 20140212
  18. LASIX [Concomitant]
     Active Substance: FUROSEMIDE
     Indication: OEDEMA
     Route: 048
     Dates: start: 20131219, end: 20160805
  19. PREDNISOLONE. [Suspect]
     Active Substance: PREDNISOLONE
     Route: 048
     Dates: start: 20140207
  20. LIPITOR [Suspect]
     Active Substance: ATORVASTATIN CALCIUM
     Indication: HYPERLIPIDAEMIA
     Route: 048
     Dates: end: 20080321
  21. BEZATOL [Concomitant]
     Active Substance: BEZAFIBRATE
     Indication: NON-ALCOHOLIC STEATOHEPATITIS
     Route: 048
     Dates: start: 20100115, end: 20160706
  22. ARTIST [Concomitant]
     Active Substance: CARVEDILOL
     Indication: HYPERTENSION
     Route: 048
     Dates: start: 20120914, end: 20130509
  23. PROTECADIN [Concomitant]
     Active Substance: LAFUTIDINE
     Indication: GASTROENTERITIS
     Route: 048
     Dates: start: 20140218
  24. TACROLIMUS. [Suspect]
     Active Substance: TACROLIMUS
     Route: 048
     Dates: start: 20090912, end: 20091113
  25. CERCINE [Concomitant]
     Active Substance: DIAZEPAM
     Indication: PRODUCT USED FOR UNKNOWN INDICATION
     Route: 048
  26. FLAVERIC [Concomitant]
     Active Substance: BENPROPERINE PHOSPHATE
     Indication: PHARYNGITIS
     Route: 065
  27. FLAVERIC [Concomitant]
     Active Substance: BENPROPERINE PHOSPHATE
     Indication: UPPER RESPIRATORY TRACT INFLAMMATION
  28. LAC B [Concomitant]
     Active Substance: BIFIDOBACTERIUM SPP.
     Indication: GASTROENTERITIS
     Dosage: UNK UNK, UNKNOWN FREQ.
     Route: 065
  29. PANTOSIN [Concomitant]
     Active Substance: PANTETHINE
     Indication: GASTROENTERITIS
     Route: 048
     Dates: start: 20110311, end: 20120829
  30. CARDENALIN [Concomitant]
     Active Substance: DOXAZOSIN MESYLATE
     Indication: HYPERTENSION
     Route: 048
     Dates: start: 20140217, end: 20140227
  31. TACROLIMUS. [Suspect]
     Active Substance: TACROLIMUS
     Route: 048
     Dates: start: 20091114, end: 20160422
  32. ULGUT                              /00963803/ [Concomitant]
     Indication: PROPHYLAXIS
     Route: 048
  33. METHYCOBAL [Concomitant]
     Active Substance: METHYLCOBALAMIN
     Indication: PRODUCT USED FOR UNKNOWN INDICATION
     Dosage: 1500 UG, ONCE DAILY
     Route: 048
  34. CALONAL [Concomitant]
     Active Substance: ACETAMINOPHEN
     Route: 048
     Dates: start: 20091114, end: 20150625
  35. CARDENALIN [Concomitant]
     Active Substance: DOXAZOSIN MESYLATE
     Route: 048
     Dates: start: 20140227
  36. MIYA-BM [Concomitant]
     Active Substance: CLOSTRIDIUM BUTYRICUM SPORES STRAIN M-55
     Indication: GASTROENTERITIS
     Route: 048
     Dates: start: 20141211
  37. ZEFNART [Concomitant]
     Indication: BOWEN^S DISEASE
     Dosage: UNK UNK, UNKNOWN FREQ.
     Route: 065
  38. ZEFNART [Concomitant]
     Indication: TINEA CRURIS
  39. CRESTOR [Concomitant]
     Active Substance: ROSUVASTATIN CALCIUM
     Indication: NON-ALCOHOLIC STEATOHEPATITIS
  40. MICARDIS [Concomitant]
     Active Substance: TELMISARTAN
     Indication: HYPERTENSION
     Route: 048
     Dates: start: 20100313, end: 20120914
  41. BIOFERMIN                          /01617201/ [Concomitant]
     Active Substance: DIETARY SUPPLEMENT\PROBIOTICS
     Indication: GASTROENTERITIS
     Route: 048
     Dates: start: 20140218
  42. PREDNISOLONE. [Suspect]
     Active Substance: PREDNISOLONE
     Indication: LUPUS NEPHRITIS
     Route: 048
     Dates: end: 20071103
  43. PREDNISOLONE. [Suspect]
     Active Substance: PREDNISOLONE
     Dosage: 20MG/15MG, EVERY OTHER DAY
     Route: 048
     Dates: start: 20071214, end: 20080322
  44. CEFZON [Concomitant]
     Active Substance: CEFDINIR
     Indication: PHARYNGITIS
     Route: 048
  45. CEFZON [Concomitant]
     Active Substance: CEFDINIR
     Indication: UPPER RESPIRATORY TRACT INFLAMMATION
  46. TATHION [Concomitant]
     Active Substance: GLUTATHIONE
     Indication: CATARACT
     Dosage: UNK UNK, UNKNOWN FREQ.
     Route: 065
  47. GENTACIN [Concomitant]
     Active Substance: GENTAMICIN SULFATE
     Indication: BOWEN^S DISEASE
     Dosage: UNK UNK, UNKNOWN FREQ.
     Route: 065
  48. ATELEC [Concomitant]
     Active Substance: CILNIDIPINE
     Indication: HYPERTENSION
     Route: 048
     Dates: start: 20120914
  49. ARTIST [Concomitant]
     Active Substance: CARVEDILOL
     Route: 048
     Dates: start: 20130510
  50. FEBURIC [Concomitant]
     Active Substance: FEBUXOSTAT
     Indication: HYPERURICAEMIA
     Route: 048
     Dates: start: 20140213

REACTIONS (14)
  - Osteoporosis [Unknown]
  - Non-alcoholic steatohepatitis [Not Recovered/Not Resolved]
  - Gastroenteritis [Recovering/Resolving]
  - Upper respiratory tract infection [Recovering/Resolving]
  - Hepatic function abnormal [Recovered/Resolved]
  - Hypoaesthesia [Unknown]
  - Hypertension [Not Recovered/Not Resolved]
  - Hyperuricaemia [Not Recovered/Not Resolved]
  - Bowen^s disease [Not Recovered/Not Resolved]
  - Pharyngitis [Recovering/Resolving]
  - Sudden death [Fatal]
  - Tinea cruris [Recovering/Resolving]
  - Cervical dysplasia [Not Recovered/Not Resolved]
  - Cataract [Unknown]

NARRATIVE: CASE EVENT DATE: 200801
